FAERS Safety Report 8871390 (Version 1)
Quarter: 2012Q4

REPORT INFORMATION
  Report Type: 
  Country: US (occurrence: US)
  Receive Date: 20121023
  Receipt Date: 20121023
  Transmission Date: 20130627
  Serious: Yes (Hospitalization, Other)
  Sender: FDA-Public Use
  Company Number: US-ELI_LILLY_AND_COMPANY-US201210004436

PATIENT
  Sex: Female
  Weight: 64.4 kg

DRUGS (10)
  1. BYDUREON [Suspect]
     Indication: TYPE 2 DIABETES MELLITUS
     Dosage: 2 mg, weekly (1/W)
     Route: 058
     Dates: start: 201204
  2. METFORMIN [Concomitant]
     Indication: TYPE 2 DIABETES MELLITUS
     Dosage: 1000 mg, bid
  3. CARDIZEM                           /00489701/ [Concomitant]
     Indication: HYPERTENSION
     Dosage: 120 mg, qd
     Route: 048
     Dates: start: 201207
  4. ATENOLOL [Concomitant]
     Indication: HYPERTENSION
     Dosage: 100 mg, bid
  5. DIOVAN [Concomitant]
     Indication: HYPERTENSION
     Dosage: 160 mg, qd
  6. HYDROCHLOROTHIAZIDE [Concomitant]
     Indication: HYPERTENSION
     Dosage: UNK, qd
     Route: 048
     Dates: end: 201207
  7. CRESTOR [Concomitant]
     Indication: HYPERCHOLESTEROLAEMIA
     Dosage: 10 mg, qd
     Route: 048
  8. SINGULAIR [Concomitant]
     Indication: ASTHMA
     Dosage: 10 mg, qd
     Route: 048
  9. MAGINEX [Concomitant]
     Dosage: 5800 mg, qd
     Route: 048
     Dates: start: 201208
  10. OMEPRAZOLE [Concomitant]
     Indication: GASTROOESOPHAGEAL REFLUX DISEASE
     Dosage: UNK
     Route: 048
     Dates: end: 201207

REACTIONS (13)
  - Sepsis [Unknown]
  - Pneumonia [Unknown]
  - Blood magnesium decreased [Unknown]
  - Urinary tract infection [Unknown]
  - Dehydration [Unknown]
  - Sinusitis [Unknown]
  - Pyrexia [Unknown]
  - Malaise [Unknown]
  - Paraesthesia [Unknown]
  - Hypotension [Unknown]
  - Dyspnoea [Unknown]
  - Asthenia [Unknown]
  - Weight decreased [Unknown]
